FAERS Safety Report 13438983 (Version 1)
Quarter: 2017Q2

REPORT INFORMATION
  Report Type: Spontaneous
  Country: US (occurrence: US)
  Receive Date: 20170413
  Receipt Date: 20170413
  Transmission Date: 20170830
  Serious: No
  Sender: FDA-Public Use
  Company Number: US-ROCHE-704264

PATIENT
  Age: 63 Year
  Sex: Male
  Weight: 99.8 kg

DRUGS (8)
  1. XENICAL [Suspect]
     Active Substance: ORLISTAT
     Indication: WEIGHT CONTROL
     Dosage: FORM: PILLS
     Route: 048
  2. XENICAL [Suspect]
     Active Substance: ORLISTAT
     Route: 048
     Dates: start: 20100310, end: 201004
  3. ATENOLOL. [Concomitant]
     Active Substance: ATENOLOL
     Route: 065
  4. GLIBENCLAMIDE [Concomitant]
     Active Substance: GLYBURIDE
     Dosage: DRUG RPTD AS GLYPRIDE
     Route: 065
  5. ASPIRIN. [Concomitant]
     Active Substance: ASPIRIN
     Route: 065
  6. UNKNOWN MEDICATION [Concomitant]
     Active Substance: UNSPECIFIED INGREDIENT
     Dosage: DRUG REPORTED: OMEGA 3
     Route: 065
  7. FISH OIL [Concomitant]
     Active Substance: FISH OIL
     Route: 065
  8. METFORMIN [Concomitant]
     Active Substance: METFORMIN HYDROCHLORIDE
     Route: 065

REACTIONS (4)
  - Faeces discoloured [Unknown]
  - Drug ineffective [Unknown]
  - Product quality issue [Unknown]
  - Weight increased [Unknown]

NARRATIVE: CASE EVENT DATE: 201004
